FAERS Safety Report 14172856 (Version 3)
Quarter: 2018Q1

REPORT INFORMATION
  Report Type: Report from Study
  Country: GB (occurrence: GB)
  Receive Date: 20171109
  Receipt Date: 20180129
  Transmission Date: 20180508
  Serious: Yes (Hospitalization, Other)
  Sender: FDA-Public Use
  Company Number: GB-BRISTOL-MYERS SQUIBB COMPANY-BMS-2017-029743

PATIENT
  Sex: Male

DRUGS (1)
  1. ABATACEPT [Suspect]
     Active Substance: ABATACEPT
     Indication: RHEUMATOID ARTHRITIS
     Dosage: 125 MG, QWK
     Route: 058
     Dates: start: 20140729

REACTIONS (6)
  - Lower respiratory tract infection [Recovered/Resolved]
  - Sepsis [Unknown]
  - Malaise [Unknown]
  - Immunodeficiency [Unknown]
  - Cardiac disorder [Unknown]
  - Neoplasm malignant [Unknown]
